FAERS Safety Report 7654304-X (Version None)
Quarter: 2011Q3

REPORT INFORMATION
  Report Type: 
  Country: None (occurrence: None)
  Receive Date: 20110803
  Receipt Date: 20110729
  Transmission Date: 20111222
  Serious: Yes (Death, Hospitalization)
  Sender: FDA-Public Use
  Company Number: PHHY2009JP15143

PATIENT
  Age: 70 Year
  Sex: Male

DRUGS (4)
  1. NEORAL [Suspect]
     Indication: INTERSTITIAL LUNG DISEASE
     Dosage: UNK
     Dates: start: 20070801
  2. NEORAL [Suspect]
     Indication: DERMATOMYOSITIS
  3. STEROIDS NOS [Concomitant]
     Indication: DERMATOMYOSITIS
     Dosage: UNK
     Dates: start: 20070801
  4. STEROIDS NOS [Concomitant]
     Indication: INTERSTITIAL LUNG DISEASE

REACTIONS (13)
  - FATIGUE [None]
  - THROMBOTIC THROMBOCYTOPENIC PURPURA [None]
  - PULMONARY ALVEOLAR HAEMORRHAGE [None]
  - RESPIRATORY DISORDER [None]
  - LUNG INFILTRATION [None]
  - RENAL IMPAIRMENT [None]
  - PANCYTOPENIA [None]
  - PLATELET COUNT DECREASED [None]
  - ANAEMIA [None]
  - HISTIOCYTOSIS HAEMATOPHAGIC [None]
  - BLOOD LACTATE DEHYDROGENASE INCREASED [None]
  - RED BLOOD CELL SCHISTOCYTES PRESENT [None]
  - CYTOMEGALOVIRUS INFECTION [None]
